FAERS Safety Report 22163114 (Version 1)
Quarter: 2023Q2

REPORT INFORMATION
  Report Type: Spontaneous
  Country: US (occurrence: US)
  Receive Date: 20230401
  Receipt Date: 20230401
  Transmission Date: 20230722
  Serious: Yes (Hospitalization)
  Sender: FDA-Public Use
  Company Number: US-AUROBINDO-AUR-APL-2023-014021

PATIENT
  Age: 4 Year
  Sex: Male
  Weight: 16.329 kg

DRUGS (1)
  1. AMOXICILLIN [Suspect]
     Active Substance: AMOXICILLIN
     Indication: Pharyngitis
     Dosage: 8 MILLILITER, TWO TIMES A DAY (PER DAY (MORNING AND AFTERNOON)) TOOK IT FOR 10 DAYS
     Route: 065
     Dates: start: 20230307, end: 20230316

REACTIONS (1)
  - Serum sickness [Not Recovered/Not Resolved]

NARRATIVE: CASE EVENT DATE: 20230317
